FAERS Safety Report 25381733 (Version 1)
Quarter: 2025Q2

REPORT INFORMATION
  Report Type: Spontaneous
  Country: CN (occurrence: CN)
  Receive Date: 20250531
  Receipt Date: 20250531
  Transmission Date: 20250716
  Serious: Yes (Congenital Anomaly, Other)
  Sender: AMGEN
  Company Number: CN-AMGEN-CHNSP2025103598

PATIENT

DRUGS (3)
  1. ETANERCEPT [Suspect]
     Active Substance: ETANERCEPT
     Indication: Product used for unknown indication
     Route: 058
  2. CERTOLIZUMAB PEGOL [Suspect]
     Active Substance: CERTOLIZUMAB PEGOL
     Indication: Product used for unknown indication
     Route: 058
  3. GOLIMUMAB [Suspect]
     Active Substance: GOLIMUMAB
     Indication: Product used for unknown indication
     Route: 065

REACTIONS (57)
  - Malignant polyp [Unknown]
  - Nervous system disorder [Unknown]
  - Cardiac disorder [Unknown]
  - Lymphatic disorder [Unknown]
  - Venous thrombosis [Unknown]
  - Vena cava thrombosis [Unknown]
  - Thrombotic thrombocytopenic purpura [Unknown]
  - Thrombotic microangiopathy [Unknown]
  - Thrombosis [Unknown]
  - Thrombophlebitis [Unknown]
  - Superficial vein thrombosis [Unknown]
  - Splenic vein thrombosis [Unknown]
  - Pulmonary thrombosis [Unknown]
  - Postoperative thrombosis [Unknown]
  - Portal vein thrombosis [Unknown]
  - Peripheral artery thrombosis [Unknown]
  - Jugular vein thrombosis [Unknown]
  - Cardiac ventricular thrombosis [Unknown]
  - Haemorrhoids thrombosed [Unknown]
  - Device related thrombosis [Unknown]
  - Deep vein thrombosis postoperative [Unknown]
  - Cerebral venous sinus thrombosis [Unknown]
  - Cerebral thrombosis [Unknown]
  - Aortic thrombosis [Unknown]
  - Arterial thrombosis [Unknown]
  - Congenital anomaly [Unknown]
  - Poisoning [Unknown]
  - Blood disorder [Unknown]
  - Deep vein thrombosis [Unknown]
  - Respiratory disorder [Unknown]
  - Urinary tract disorder [Unknown]
  - Mediastinal disorder [Unknown]
  - Inner ear disorder [Unknown]
  - Renal disorder [Unknown]
  - Gastrointestinal disorder [Unknown]
  - Endocrine disorder [Unknown]
  - Hepatobiliary disease [Unknown]
  - Immune system disorder [Unknown]
  - Eye disorder [Unknown]
  - Breast disorder [Unknown]
  - Mental disorder [Unknown]
  - Lung disorder [Unknown]
  - Nutritional condition abnormal [Unknown]
  - Angiopathy [Unknown]
  - Ear disorder [Unknown]
  - Procedural complication [Unknown]
  - Skin disorder [Unknown]
  - Injury [Unknown]
  - Infestation [Unknown]
  - Musculoskeletal disorder [Unknown]
  - Connective tissue disorder [Unknown]
  - General physical health deterioration [Unknown]
  - Neoplasm [Unknown]
  - Reproductive tract disorder [Unknown]
  - Cyst [Unknown]
  - Infection [Unknown]
  - Administration site reaction [Unknown]
